FAERS Safety Report 21592567 (Version 1)
Quarter: 2022Q4

REPORT INFORMATION
  Report Type: Spontaneous
  Country: US (occurrence: None)
  Receive Date: 20221112
  Receipt Date: 20221112
  Transmission Date: 20230112
  Serious: Yes (Hospitalization)
  Sender: FDA-Public Use
  Company Number: None

PATIENT
  Age: 3 Year
  Sex: Male
  Weight: 15.8 kg

DRUGS (11)
  1. DINUTUXIMAB [Suspect]
     Active Substance: DINUTUXIMAB
     Dates: end: 20221107
  2. ACETAMINOPHEN [Concomitant]
     Active Substance: ACETAMINOPHEN
  3. CYPROHEPTIDINE [Concomitant]
  4. IOBENGUANE SULFATE I-131 [Concomitant]
     Active Substance: IOBENGUANE SULFATE I-131
  5. KETAMINE [Concomitant]
     Active Substance: KETAMINE
  6. MORPHINE [Concomitant]
     Active Substance: MORPHINE
  7. ONDANSETRON [Concomitant]
     Active Substance: ONDANSETRON
  8. SARGRAMOSTIM [Concomitant]
     Active Substance: SARGRAMOSTIM
  9. CHLOHEXIDINE GLUCONATE 2% [Concomitant]
  10. CHOLECALCIFEROL [Concomitant]
     Active Substance: CHOLECALCIFEROL
  11. GABAPENTIN [Concomitant]
     Active Substance: GABAPENTIN

REACTIONS (6)
  - Pyrexia [None]
  - Hypoxia [None]
  - Tachycardia [None]
  - Hypotension [None]
  - Shock [None]
  - Capillary leak syndrome [None]

NARRATIVE: CASE EVENT DATE: 20221108
